FAERS Safety Report 19185944 (Version 1)
Quarter: 2021Q2

REPORT INFORMATION
  Report Type: Report from Study
  Country: CO (occurrence: CO)
  Receive Date: 20210427
  Receipt Date: 20210427
  Transmission Date: 20210717
  Serious: Yes (Other)
  Sender: FDA-Public Use
  Company Number: CO-JNJFOC-20210327259

PATIENT
  Age: 60 Year
  Sex: Female
  Weight: 65 kg

DRUGS (2)
  1. SIMPONI [Suspect]
     Active Substance: GOLIMUMAB
     Indication: RHEUMATOID ARTHRITIS
     Dosage: LATEST ADMINISTRATION WAS 18?JAN?2021
     Route: 058
     Dates: start: 20180427
  2. SIMPONI [Suspect]
     Active Substance: GOLIMUMAB
     Dosage: THE LATEST ADMINISTRATION WAS 18?JAN?2021
     Route: 058
     Dates: start: 20200604

REACTIONS (2)
  - COVID-19 [Recovered/Resolved]
  - Rheumatoid arthritis [Recovered/Resolved]

NARRATIVE: CASE EVENT DATE: 202101
